FAERS Safety Report 16709758 (Version 4)
Quarter: 2019Q3

REPORT INFORMATION
  Report Type: Spontaneous
  Country: PL (occurrence: PL)
  Receive Date: 20190816
  Receipt Date: 20190829
  Transmission Date: 20191004
  Serious: Yes (Death, Other)
  Sender: FDA-Public Use
  Company Number: PL-ELI_LILLY_AND_COMPANY-PL201908006847

PATIENT
  Age: 46 Year
  Sex: Female

DRUGS (12)
  1. ARIPIPRAZOLE. [Suspect]
     Active Substance: ARIPIPRAZOLE
     Indication: BIPOLAR DISORDER
     Dosage: 7.5 MG, DAILY
     Route: 065
  2. CIPROFLOXACIN. [Interacting]
     Active Substance: CIPROFLOXACIN
     Indication: BACTERIAL TEST
  3. LEVOFLOXACIN. [Interacting]
     Active Substance: LEVOFLOXACIN
     Indication: URINARY TRACT INFECTION
     Dosage: UNK, UNKNOWN
     Route: 065
  4. PANTOPRAZOLE [Interacting]
     Active Substance: PANTOPRAZOLE
     Indication: GASTROOESOPHAGEAL REFLUX DISEASE
     Dosage: 40 MG, DAILY
     Route: 048
  5. ITOPRIDE [Interacting]
     Active Substance: ITOPRIDE
     Indication: GASTROOESOPHAGEAL REFLUX DISEASE
     Dosage: 50 MG, TID
     Route: 048
  6. TRIMETHOPRIM. [Interacting]
     Active Substance: TRIMETHOPRIM
     Indication: URINARY TRACT INFECTION
     Dosage: UNK, UNKNOWN
     Route: 065
  7. CEFUROXIME AXETIL. [Interacting]
     Active Substance: CEFUROXIME AXETIL
     Indication: URINARY TRACT INFECTION
     Dosage: UNK, UNKNOWN
     Route: 065
  8. SULFAMETHOXAZOLE [Interacting]
     Active Substance: SULFAMETHOXAZOLE
     Indication: URINARY TRACT INFECTION
     Dosage: UNK, UNKNOWN
     Route: 065
  9. NIFUROXAZIDE [Interacting]
     Active Substance: NIFUROXAZIDE
     Indication: DIARRHOEA
     Dosage: UNK, UNKNOWN
     Route: 065
  10. CIPROFLOXACIN. [Interacting]
     Active Substance: CIPROFLOXACIN
     Indication: LEUKOCYTOSIS
     Dosage: UNK, UNKNOWN
     Route: 065
  11. OLANZAPINE. [Suspect]
     Active Substance: OLANZAPINE
     Indication: BIPOLAR DISORDER
     Dosage: 10 MG, DAILY
     Route: 065
  12. NIFUROXAZIDE [Interacting]
     Active Substance: NIFUROXAZIDE
     Indication: ABDOMINAL PAIN

REACTIONS (11)
  - Peritonitis [Fatal]
  - White blood cells urine positive [Unknown]
  - Intestinal perforation [Fatal]
  - Trimethylaminuria [Unknown]
  - Bacterial test [Unknown]
  - Dysbiosis [Unknown]
  - Megacolon [Unknown]
  - Gastrooesophageal reflux disease [Unknown]
  - Clostridium difficile infection [Unknown]
  - Pseudomembranous colitis [Unknown]
  - Drug interaction [Unknown]
